FAERS Safety Report 7150265-0 (Version None)
Quarter: 2010Q4

REPORT INFORMATION
  Report Type: 
  Country: None (occurrence: None)
  Receive Date: 20101207
  Receipt Date: 20101207
  Transmission Date: 20110411
  Serious: Yes (Hospitalization, Other)
  Sender: FDA-Public Use
  Company Number: None

PATIENT
  Age: 68 Year
  Sex: Male
  Weight: 88.45 kg

DRUGS (14)
  1. LOVENOX [Suspect]
     Indication: DEEP VEIN THROMBOSIS
     Dosage: 90 TWICE DAILY SUBCUTANEOUS
     Route: 058
     Dates: start: 20100311, end: 20100326
  2. LISINOPRIL [Concomitant]
  3. CLINDAMYCIN [Concomitant]
  4. SULFAMETHOXAZOLE AND TRIMETHOPRIM [Concomitant]
  5. AMPHETAMINE/DEXTROEMPHETAMINE [Concomitant]
  6. EVEROLIMUS [Concomitant]
  7. MORPHINE SULFATE [Concomitant]
  8. FENOFIBRATE [Concomitant]
  9. PROCHLOROPERAZINE [Concomitant]
  10. DOCUSATE SODIUM [Concomitant]
  11. PRAVASTATIN [Concomitant]
  12. ACETAMINOPHEN AND HYDROCODONE BITARTRATE [Concomitant]
  13. OMEPRAZOLE [Concomitant]
  14. OXYCODONE HCL [Concomitant]

REACTIONS (4)
  - BLOOD CREATININE INCREASED [None]
  - CATHETER SITE ERYTHEMA [None]
  - MUSCLE HAEMORRHAGE [None]
  - TRAUMATIC HAEMATOMA [None]
